FAERS Safety Report 6383233-7 (Version None)
Quarter: 2009Q3

REPORT INFORMATION
  Report Type: 
  Country: None (occurrence: None)
  Receive Date: 20090929
  Receipt Date: 20090916
  Transmission Date: 20100115
  Serious: Yes (Death)
  Sender: FDA-Public Use
  Company Number: CIO09017345

PATIENT
  Sex: Female

DRUGS (1)
  1. METAMUCIL,FORM/VERSION/TEXTURE/FLAVOR UNKNOWN(PSYLLIUM HYDROPHILIC MUC [Suspect]
     Dosage: ORAL
     Route: 048

REACTIONS (1)
  - COLON CANCER [None]
